FAERS Safety Report 9319412 (Version 1)
Quarter: 2013Q2

REPORT INFORMATION
  Report Type: Spontaneous
  Country: US (occurrence: US)
  Receive Date: 20130530
  Receipt Date: 20130530
  Transmission Date: 20140414
  Serious: No
  Sender: FDA-Public Use
  Company Number: US-GLAXOSMITHKLINE-A0974210A

PATIENT
  Age: 40 Year
  Sex: Female

DRUGS (3)
  1. FLOLAN [Suspect]
     Indication: PULMONARY HYPERTENSION
     Dosage: 8NGKM UNKNOWN
     Route: 042
  2. REVATIO [Concomitant]
     Dosage: 20MG TWICE PER DAY
  3. WARFARIN [Concomitant]
     Dosage: 5MG PER DAY

REACTIONS (1)
  - Swelling face [Unknown]
